FAERS Safety Report 15798445 (Version 1)
Quarter: 2019Q1

REPORT INFORMATION
  Report Type: Spontaneous
  Country: FR (occurrence: FR)
  Receive Date: 20190108
  Receipt Date: 20190108
  Transmission Date: 20190417
  Serious: No
  Sender: FDA-Public Use
  Company Number: FR-009507513-1812FRA012199

PATIENT
  Sex: Female

DRUGS (1)
  1. DIPROSONE [Suspect]
     Active Substance: BETAMETHASONE DIPROPIONATE
     Dosage: 1 GTT DROPS
     Route: 047

REACTIONS (3)
  - Product appearance confusion [Unknown]
  - Eye irritation [Unknown]
  - Incorrect route of product administration [Unknown]
